FAERS Safety Report 14289067 (Version 3)
Quarter: 2018Q1

REPORT INFORMATION
  Report Type: Spontaneous
  Country: US (occurrence: US)
  Receive Date: 20171215
  Receipt Date: 20180306
  Transmission Date: 20180509
  Serious: No
  Sender: FDA-Public Use
  Company Number: US-PFIZER INC-2017532388

PATIENT
  Age: 60 Year
  Sex: Female

DRUGS (15)
  1. GABAPENTIN. [Suspect]
     Active Substance: GABAPENTIN
     Indication: PAIN IN EXTREMITY
     Dosage: 300 MG, 3X/DAY
     Dates: start: 201710
  2. GABAPENTIN. [Suspect]
     Active Substance: GABAPENTIN
     Indication: BONE PAIN
  3. CHOLESTYRAMINE. [Concomitant]
     Active Substance: CHOLESTYRAMINE
     Dosage: 1 SCOOP 2 X DAY
     Dates: end: 20160120
  4. GABAPENTIN. [Suspect]
     Active Substance: GABAPENTIN
     Indication: ARTHRALGIA
     Dosage: 300 MG, 3X/DAY
     Dates: start: 201711
  5. XANAX [Concomitant]
     Active Substance: ALPRAZOLAM
     Indication: ANXIETY
     Dosage: 1 MG, 3X/DAY
     Route: 048
  6. OXYCODONE [Concomitant]
     Active Substance: OXYCODONE
     Indication: PAIN
     Dosage: 15 MG, 3X/DAY
     Route: 048
  7. LORTAB [Concomitant]
     Active Substance: ACETAMINOPHEN\HYDROCODONE BITARTRATE
     Indication: PAIN
     Dosage: (HYDROCODONE BITARTRATE: 10 MG; PARACETAMOL: 325 MG) 4X/DAY
     Dates: end: 2017
  8. XANAX [Concomitant]
     Active Substance: ALPRAZOLAM
     Indication: GENITAL HERPES
  9. LEFLUNOMIDE. [Concomitant]
     Active Substance: LEFLUNOMIDE
     Dosage: 10 MG, 1X/DAY
  10. PRAVASTATIN. [Concomitant]
     Active Substance: PRAVASTATIN
     Indication: BLOOD CHOLESTEROL INCREASED
     Dosage: 40 MG, 1X/DAY
  11. WELCHOL [Concomitant]
     Active Substance: COLESEVELAM HYDROCHLORIDE
     Indication: DIARRHOEA
     Dosage: 625 MG, 1X/DAY
  12. GABAPENTIN. [Suspect]
     Active Substance: GABAPENTIN
     Indication: PARAESTHESIA
     Dosage: 300 MG, 1X/DAY (1 AT BEDTIME)
     Dates: start: 20160512, end: 20171015
  13. GABAPENTIN. [Suspect]
     Active Substance: GABAPENTIN
     Indication: BACK PAIN
  14. XANAX [Concomitant]
     Active Substance: ALPRAZOLAM
     Indication: BLISTER
  15. BACLOFEN. [Concomitant]
     Active Substance: BACLOFEN
     Indication: FIBROMYALGIA
     Dosage: 20 MG, 2X/DAY

REACTIONS (1)
  - Drug ineffective for unapproved indication [Not Recovered/Not Resolved]
